FAERS Safety Report 10499542 (Version 1)
Quarter: 2014Q4

REPORT INFORMATION
  Report Type: Spontaneous
  Country: US (occurrence: US)
  Receive Date: 20141006
  Receipt Date: 20141006
  Transmission Date: 20150528
  Serious: No
  Sender: FDA-Public Use
  Company Number: US-AMGEN INC.-USASP2014035813

PATIENT
  Age: 78 Year
  Sex: Female

DRUGS (20)
  1. ASPIRIN. [Concomitant]
     Active Substance: ASPIRIN
     Dosage: 81 MG, QD
  2. CARVEDILOL. [Concomitant]
     Active Substance: CARVEDILOL
  3. ALBUTEROL                          /00139501/ [Concomitant]
     Active Substance: ALBUTEROL
  4. LANTUS [Concomitant]
     Active Substance: INSULIN GLARGINE
  5. IRON [Concomitant]
     Active Substance: IRON
  6. ALLOPURINOL. [Concomitant]
     Active Substance: ALLOPURINOL
  7. PROLIA [Suspect]
     Active Substance: DENOSUMAB
     Indication: OSTEOPOROSIS
     Dosage: UNK
     Route: 065
     Dates: start: 201311
  8. SYMBICORT [Concomitant]
     Active Substance: BUDESONIDE\FORMOTEROL FUMARATE DIHYDRATE
  9. HUMALOG [Concomitant]
     Active Substance: INSULIN LISPRO
  10. SYNTHROID [Concomitant]
     Active Substance: LEVOTHYROXINE SODIUM
  11. LANSOPRAZOLE. [Concomitant]
     Active Substance: LANSOPRAZOLE
  12. CRESTOR [Concomitant]
     Active Substance: ROSUVASTATIN CALCIUM
  13. LASIX [Concomitant]
     Active Substance: FUROSEMIDE
  14. MULTIVITAMIN                       /00097801/ [Concomitant]
     Active Substance: VITAMINS
  15. SPIRIVA [Concomitant]
     Active Substance: TIOTROPIUM BROMIDE MONOHYDRATE
  16. FISH OIL [Concomitant]
     Active Substance: FISH OIL
  17. CARAFATE [Concomitant]
     Active Substance: SUCRALFATE
  18. MIRAPEX [Concomitant]
     Active Substance: PRAMIPEXOLE DIHYDROCHLORIDE
  19. MIRALAX [Concomitant]
     Active Substance: POLYETHYLENE GLYCOL 3350
  20. LYRICA [Concomitant]
     Active Substance: PREGABALIN

REACTIONS (1)
  - Hypersomnia [Unknown]
